FAERS Safety Report 6785199-4 (Version None)
Quarter: 2010Q2

REPORT INFORMATION
  Report Type: 
  Country: None (occurrence: None)
  Receive Date: 20100621
  Receipt Date: 20100621
  Transmission Date: 20101027
  Serious: Yes (Other)
  Sender: FDA-Public Use
  Company Number: None

PATIENT
  Age: 52 Year
  Sex: Female
  Weight: 99.7913 kg

DRUGS (2)
  1. LEVAQUIN [Suspect]
     Indication: DYSTONIA
     Dosage: 500MG 1 PER DAY
     Dates: start: 20100617, end: 20100620
  2. LEVAQUIN [Suspect]
     Indication: JOINT STIFFNESS
     Dosage: 500MG 1 PER DAY
     Dates: start: 20100617, end: 20100620

REACTIONS (4)
  - ARTHRALGIA [None]
  - CONDITION AGGRAVATED [None]
  - DYSTONIA [None]
  - MUSCULOSKELETAL STIFFNESS [None]
